FAERS Safety Report 9492549 (Version 2)
Quarter: 2013Q3

REPORT INFORMATION
  Report Type: Report from Study
  Country: BR (occurrence: BR)
  Receive Date: 20130830
  Receipt Date: 20130904
  Transmission Date: 20140515
  Serious: Yes (Other)
  Sender: FDA-Public Use
  Company Number: BR-US-EMD SERONO, INC.-7233252

PATIENT
  Sex: Female

DRUGS (4)
  1. REBIF [Suspect]
     Indication: MULTIPLE SCLEROSIS
  2. REBIF [Suspect]
     Dates: start: 20100801
  3. COPAXONE /01410902/ [Suspect]
     Indication: PRODUCT USED FOR UNKNOWN INDICATION
  4. RIVOTRIL [Concomitant]
     Indication: PRODUCT USED FOR UNKNOWN INDICATION

REACTIONS (9)
  - Labyrinthitis [Recovering/Resolving]
  - Lipodystrophy acquired [Recovering/Resolving]
  - Urinary tract infection [Recovering/Resolving]
  - Dizziness [Recovering/Resolving]
  - Nausea [Recovering/Resolving]
  - VIIth nerve paralysis [Recovering/Resolving]
  - Diplopia [Recovering/Resolving]
  - Injection site erythema [Recovering/Resolving]
  - Patient-device incompatibility [Unknown]
